FAERS Safety Report 13272585 (Version 8)
Quarter: 2017Q2

REPORT INFORMATION
  Report Type: Spontaneous
  Country: US (occurrence: US)
  Receive Date: 20170227
  Receipt Date: 20170623
  Transmission Date: 20170830
  Serious: Yes (Other)
  Sender: FDA-Public Use
  Company Number: US-PFIZER INC-2017032004

PATIENT
  Age: 62 Year
  Sex: Female

DRUGS (11)
  1. ZOMETA [Concomitant]
     Active Substance: ZOLEDRONIC ACID
     Dosage: UNK
  2. LETROZOLE. [Concomitant]
     Active Substance: LETROZOLE
     Dosage: UNK
  3. PROTONIX [Concomitant]
     Active Substance: PANTOPRAZOLE SODIUM
     Dosage: UNK
  4. IBRANCE [Suspect]
     Active Substance: PALBOCICLIB
     Indication: BREAST CANCER METASTATIC
     Dosage: 125 MG, CYCLIC [TAKE 1 CAPSULE DAILY FOR 21 DAYS ON THEN 7 DAYS OFF]
     Route: 048
     Dates: start: 20170201
  5. PRILOSEC [Concomitant]
     Active Substance: OMEPRAZOLE MAGNESIUM
     Dosage: UNK
  6. IBRANCE [Suspect]
     Active Substance: PALBOCICLIB
     Dosage: 75 MG, CYCLIC (TAKE ONE CAPSULE ONCE A DAY FOR 21 DAYS ON AND 7 DAYS OFF- REPEAT)
     Route: 048
  7. INCRUSE ELLIPTA [Concomitant]
     Active Substance: UMECLIDINIUM BROMIDE
     Dosage: UNK
  8. XGEVA [Concomitant]
     Active Substance: DENOSUMAB
     Dosage: UNK, MONTHLY (X 2 MONTHS)
  9. IBRANCE [Suspect]
     Active Substance: PALBOCICLIB
     Dosage: 100 MG, UNK
  10. PREDNISONE. [Concomitant]
     Active Substance: PREDNISONE
     Dosage: UNK
  11. BREO ELLIPTA [Concomitant]
     Active Substance: FLUTICASONE FUROATE\VILANTEROL TRIFENATATE
     Dosage: UNK

REACTIONS (30)
  - Visual impairment [Unknown]
  - Lacrimation disorder [Unknown]
  - Eyelids pruritus [Unknown]
  - Decreased appetite [Unknown]
  - Eye pruritus [Not Recovered/Not Resolved]
  - Lacrimation increased [Recovered/Resolved]
  - Swollen tongue [Recovering/Resolving]
  - Swollen tongue [Unknown]
  - Gait disturbance [Recovering/Resolving]
  - Tongue discomfort [Unknown]
  - Food allergy [Unknown]
  - Dacryostenosis acquired [Recovering/Resolving]
  - Dysgeusia [Unknown]
  - Alopecia [Recovering/Resolving]
  - Cataract [Not Recovered/Not Resolved]
  - Eye irritation [Unknown]
  - White blood cell count decreased [Unknown]
  - Lacrimation increased [Not Recovered/Not Resolved]
  - Nausea [Unknown]
  - Dysphagia [Unknown]
  - Eye pain [Not Recovered/Not Resolved]
  - Tongue discomfort [Recovering/Resolving]
  - Dyspnoea [Recovering/Resolving]
  - Eye discharge [Unknown]
  - Erythema [Unknown]
  - Pharyngeal oedema [Unknown]
  - Oral discomfort [Unknown]
  - Oral pain [Unknown]
  - Weight decreased [Unknown]
  - Eye swelling [Recovering/Resolving]

NARRATIVE: CASE EVENT DATE: 20170204
